FAERS Safety Report 7480583-8 (Version None)
Quarter: 2011Q2

REPORT INFORMATION
  Report Type: 
  Country: None (occurrence: None)
  Receive Date: 20110516
  Receipt Date: 20110504
  Transmission Date: 20111010
  Serious: No
  Sender: FDA-Public Use
  Company Number: US-JNJFOC-20110504320

PATIENT
  Sex: Male
  Weight: 122.47 kg

DRUGS (3)
  1. FENTANYL [Suspect]
     Indication: BACK PAIN
     Route: 062
  2. SOMA [Concomitant]
     Indication: BACK PAIN
     Route: 048
  3. FENTANYL [Suspect]
     Indication: BACK PAIN
     Route: 062
     Dates: start: 20110401

REACTIONS (2)
  - WRONG TECHNIQUE IN DRUG USAGE PROCESS [None]
  - PRODUCT ADHESION ISSUE [None]
